FAERS Safety Report 5528854-6 (Version None)
Quarter: 2007Q4

REPORT INFORMATION
  Report Type: 
  Country: None (occurrence: None)
  Receive Date: 20071113
  Receipt Date: 20071004
  Transmission Date: 20080405
  Serious: No
  Sender: FDA-Public Use
  Company Number: 200716160US

PATIENT
  Age: 61 Year
  Sex: Female
  Weight: 60 kg

DRUGS (9)
  1. APIDRA [Suspect]
     Indication: TYPE 2 DIABETES MELLITUS
     Dates: start: 20070201
  2. METFORMIN HCL [Concomitant]
  3. THYROID PILL [Concomitant]
  4. BUSPAR [Concomitant]
  5. BUPROPION (WELLBUTRIN /00700501/) [Concomitant]
  6. ESOMEPRAZOLE [Concomitant]
  7. OMEPRAZOLE (PRILOSEC /00661201/) [Concomitant]
  8. ATORVASTATIN CALCIUM (LIPITOR) [Concomitant]
  9. SYMLIN [Concomitant]

REACTIONS (5)
  - BLOOD GLUCOSE INCREASED [None]
  - DIZZINESS [None]
  - DYSPNOEA [None]
  - OVERDOSE [None]
  - SOMNOLENCE [None]
